FAERS Safety Report 21142371 (Version 3)
Quarter: 2022Q4

REPORT INFORMATION
  Report Type: Spontaneous
  Country: US (occurrence: US)
  Receive Date: 20220728
  Receipt Date: 20221025
  Transmission Date: 20230113
  Serious: Yes (Hospitalization, Other)
  Sender: FDA-Public Use
  Company Number: US-PFIZER INC-202201009370

PATIENT
  Age: 46 Year
  Sex: Female
  Weight: 73 kg

DRUGS (2)
  1. IBRANCE [Suspect]
     Active Substance: PALBOCICLIB
     Indication: Breast cancer female
     Dosage: 125 MG, CYCLIC  (ONE TABLET DAILY FOR 21 DAYS)
     Route: 048
     Dates: start: 20220714
  2. IBRANCE [Suspect]
     Active Substance: PALBOCICLIB
     Dosage: 125 MG, CYCLIC (ONE TABLET BY MOUTH ONCE PER DAY FOR 21 DAYS FOLLOWED 7 DAYS OFF )
     Route: 048
     Dates: start: 20220728

REACTIONS (7)
  - Pain [Unknown]
  - Neuropathy peripheral [Unknown]
  - Chromaturia [Unknown]
  - Chest pain [Unknown]
  - Alopecia [Unknown]
  - Vomiting [Unknown]
  - Fatigue [Unknown]

NARRATIVE: CASE EVENT DATE: 20220725
